FAERS Safety Report 5909036-2 (Version None)
Quarter: 2008Q4

REPORT INFORMATION
  Report Type: 
  Country: None (occurrence: None)
  Receive Date: 20081006
  Receipt Date: 20080925
  Transmission Date: 20090506
  Serious: Yes (Hospitalization)
  Sender: FDA-Public Use
  Company Number: FR-JNJFOC-20081000014

PATIENT
  Sex: Male

DRUGS (10)
  1. DURAGESIC-100 [Suspect]
     Indication: PAIN
     Route: 062
  2. ACTIQ [Suspect]
     Indication: PAIN
     Route: 048
  3. PRAVASTATIN SODIUM [Concomitant]
     Indication: DYSLIPIDAEMIA
     Route: 048
  4. ATENOLOL [Concomitant]
     Indication: PROPHYLAXIS
     Route: 048
  5. KARDEGIC [Concomitant]
     Indication: PROPHYLAXIS
     Route: 048
  6. XATRAL LP [Concomitant]
     Indication: BENIGN PROSTATIC HYPERPLASIA
     Route: 048
  7. ATARAX [Concomitant]
     Route: 048
  8. ZOLPIDEM [Concomitant]
     Route: 048
  9. OGAST [Concomitant]
     Indication: GASTRIC ULCER
     Route: 048
  10. STRESAM [Concomitant]
     Route: 048

REACTIONS (4)
  - COGNITIVE DISORDER [None]
  - CONDITION AGGRAVATED [None]
  - DRUG ADMINISTRATION ERROR [None]
  - MALAISE [None]
